FAERS Safety Report 9337364 (Version 3)
Quarter: 2013Q3

REPORT INFORMATION
  Report Type: Spontaneous
  Country: JP (occurrence: JP)
  Receive Date: 20130607
  Receipt Date: 20130812
  Transmission Date: 20140515
  Serious: Yes (Other)
  Sender: FDA-Public Use
  Company Number: JP-GLAXOSMITHKLINE-B0896089A

PATIENT
  Age: 68 Year
  Sex: Female

DRUGS (9)
  1. CELECOX [Concomitant]
     Route: 048
  2. LANSOPRAZOLE [Concomitant]
     Route: 065
  3. PURSENNID [Concomitant]
     Route: 048
  4. MAGMITT [Concomitant]
     Route: 048
  5. VALTREX [Suspect]
     Indication: GENITAL HERPES
     Dosage: 500MG TWICE PER DAY
     Route: 048
     Dates: start: 20130528
  6. OXYCONTIN [Suspect]
     Indication: PRODUCT USED FOR UNKNOWN INDICATION
     Route: 048
  7. LYRICA [Concomitant]
     Route: 048
  8. LENDORMIN [Concomitant]
     Route: 048
  9. ACETAMINOPHEN [Concomitant]
     Route: 048

REACTIONS (2)
  - Respiratory depression [Recovered/Resolved]
  - Liver disorder [Unknown]
